FAERS Safety Report 9701126 (Version 1)
Quarter: 2013Q4

REPORT INFORMATION
  Report Type: Spontaneous
  Country: US (occurrence: None)
  Receive Date: 20131120
  Receipt Date: 20131120
  Transmission Date: 20140711
  Serious: No
  Sender: FDA-Public Use
  Company Number: None

PATIENT
  Age: 58 None
  Sex: Female

DRUGS (9)
  1. AFINITOR [Suspect]
     Route: 048
     Dates: start: 20130508
  2. AMBIEN [Concomitant]
  3. DRAMAMINE [Concomitant]
  4. THIAMINE [Concomitant]
  5. ALPRAZOLAM [Concomitant]
  6. OXYCODONE [Concomitant]
  7. MULTIVITAMINS [Concomitant]
  8. FOLIC ACID [Concomitant]
  9. CYCLOBENZAPRINE [Concomitant]

REACTIONS (2)
  - Pruritus [None]
  - Onychoclasis [None]
